FAERS Safety Report 6424604-X (Version None)
Quarter: 2009Q4

REPORT INFORMATION
  Report Type: 
  Country: None (occurrence: None)
  Receive Date: 20091103
  Receipt Date: 20091023
  Transmission Date: 20100525
  Serious: Yes (Other)
  Sender: FDA-Public Use
  Company Number: PHHY2009CH46322

PATIENT
  Age: 78 Year
  Sex: Male

DRUGS (8)
  1. TEGRETOL [Suspect]
     Dosage: 2 TIMES 200 MG/DAY
     Route: 048
     Dates: start: 20090914, end: 20090930
  2. MUTAGRIP [Suspect]
     Dosage: UNK
     Route: 030
     Dates: start: 20090925
  3. NEURONTIN [Suspect]
     Dosage: UNK
     Route: 048
  4. ASPIRIN [Concomitant]
     Dosage: 100 MG/DAY
     Route: 048
  5. TORASEMIDE [Concomitant]
     Dosage: 5 MG/DAY
     Route: 048
     Dates: start: 20090902
  6. DAFALGAN [Concomitant]
     Dosage: 500 MG, TID
     Route: 048
     Dates: start: 20090828
  7. CORDARONE [Concomitant]
     Dosage: 100 MG/DAY
     Route: 048
     Dates: start: 20070101
  8. INFLUENZA VACCINE [Concomitant]
     Dosage: UNK
     Dates: start: 20090925

REACTIONS (1)
  - DERMATITIS EXFOLIATIVE [None]
